FAERS Safety Report 7783348-2 (Version None)
Quarter: 2011Q3

REPORT INFORMATION
  Report Type: 
  Country: None (occurrence: None)
  Receive Date: 20110927
  Receipt Date: 20110927
  Transmission Date: 20111222
  Serious: No
  Sender: FDA-Public Use
  Company Number: None

PATIENT
  Age: 60 Year
  Sex: Male
  Weight: 91 kg

DRUGS (1)
  1. LABETALOL HCL [Suspect]
     Dosage: 400 MG BID PO
     Route: 048
     Dates: start: 20110810

REACTIONS (13)
  - HYPOTENSION [None]
  - MEMORY IMPAIRMENT [None]
  - HAEMOGLOBIN DECREASED [None]
  - WEIGHT INCREASED [None]
  - ABDOMINAL PAIN [None]
  - SINUS BRADYCARDIA [None]
  - HAEMATOCRIT DECREASED [None]
  - BLOOD POTASSIUM INCREASED [None]
  - PALPITATIONS [None]
  - CONFUSIONAL STATE [None]
  - RENAL FAILURE ACUTE [None]
  - FLUID OVERLOAD [None]
  - LETHARGY [None]
